FAERS Safety Report 5335933-5 (Version None)
Quarter: 2007Q2

REPORT INFORMATION
  Report Type: 
  Country: None (occurrence: None)
  Receive Date: 20070301
  Receipt Date: 20061012
  Transmission Date: 20071010
  Serious: Yes (Hospitalization)
  Sender: FDA-Public Use
  Company Number: US200610002165

PATIENT
  Age: 24 Year
  Sex: Female
  Weight: 136.1 kg

DRUGS (1)
  1. SYMBYAX [Suspect]
     Dosage: 2/D

REACTIONS (2)
  - PRESCRIBED OVERDOSE [None]
  - SUICIDE ATTEMPT [None]
